FAERS Safety Report 7540690-8 (Version None)
Quarter: 2011Q2

REPORT INFORMATION
  Report Type: 
  Country: None (occurrence: None)
  Receive Date: 20110610
  Receipt Date: 20110607
  Transmission Date: 20111010
  Serious: Yes (Disabling, Other)
  Sender: FDA-Public Use
  Company Number: US-PFIZER INC-2011094415

PATIENT
  Sex: Female
  Weight: 71.2 kg

DRUGS (5)
  1. CRESTOR [Concomitant]
     Dosage: UNK
  2. ESTRADIOL [Suspect]
     Dosage: 0.25 MG, UNK
  3. LOVASTATIN [Concomitant]
     Dosage: UNK
  4. LISINOPRIL [Concomitant]
     Dosage: UNK
  5. LIPITOR [Suspect]
     Indication: BLOOD CHOLESTEROL INCREASED
     Dosage: UNK
     Dates: start: 20070101, end: 20110201

REACTIONS (5)
  - SLEEP DISORDER [None]
  - MUSCULAR WEAKNESS [None]
  - PAIN IN EXTREMITY [None]
  - HEMIPARESIS [None]
  - WEIGHT BEARING DIFFICULTY [None]
